FAERS Safety Report 11339925 (Version 2)
Quarter: 2015Q4

REPORT INFORMATION
  Report Type: Spontaneous
  Country: FR (occurrence: FR)
  Receive Date: 20150805
  Receipt Date: 20151020
  Transmission Date: 20160304
  Serious: Yes (Hospitalization)
  Sender: FDA-Public Use
  Company Number: FR-PFIZER INC-2015250865

PATIENT
  Age: 65 Year
  Sex: Male

DRUGS (21)
  1. METHOTREXATE SODIUM. [Suspect]
     Active Substance: METHOTREXATE SODIUM
     Dosage: UNK
     Dates: start: 20150520
  2. PROCTOLOG /01026901/ [Concomitant]
  3. ADRIBLASTINE [Suspect]
     Active Substance: DOXORUBICIN
     Indication: B-CELL LYMPHOMA
     Dosage: 97 MG, SINGLE
     Route: 042
     Dates: start: 20150520, end: 20150520
  4. VINCRISTINE SULFATE. [Suspect]
     Active Substance: VINCRISTINE SULFATE
     Indication: B-CELL LYMPHOMA
     Dosage: UNK
     Route: 042
     Dates: start: 20150313, end: 20150313
  5. ENDOXAN /00021101/ [Suspect]
     Active Substance: CYCLOPHOSPHAMIDE
     Indication: B-CELL LYMPHOMA
     Dosage: 1455 MG, SINGLE
     Route: 042
     Dates: start: 20150520, end: 20150520
  6. INNOHEP [Concomitant]
     Active Substance: TINZAPARIN SODIUM
     Dosage: 12000 IU, UNK
  7. INEXIUM /01479302/ [Concomitant]
     Active Substance: ESOMEPRAZOLE MAGNESIUM
     Dosage: 40 MG, UNK
  8. SOLUPRED /00016201/ [Suspect]
     Active Substance: PREDNISOLONE
     Indication: B-CELL LYMPHOMA
     Dosage: 60 MG, 2X/DAY
     Route: 048
     Dates: start: 20150520, end: 20150524
  9. AMIKLIN /00391001/ [Concomitant]
     Active Substance: AMIKACIN SULFATE
     Indication: FEBRILE BONE MARROW APLASIA
  10. PRIMPERAN [Concomitant]
     Active Substance: METOCLOPRAMIDE HYDROCHLORIDE
  11. ZELITREX [Concomitant]
     Active Substance: VALACYCLOVIR HYDROCHLORIDE
     Dosage: 500 MG, UNK
  12. SOTALOL. [Concomitant]
     Active Substance: SOTALOL
     Dosage: 80 MG, UNK
  13. CORTANCYL [Concomitant]
     Active Substance: PREDNISONE
     Dosage: 10 MG, UNK
  14. METHOTREXATE SODIUM. [Suspect]
     Active Substance: METHOTREXATE SODIUM
     Indication: B-CELL LYMPHOMA
     Dosage: 1 CYCLE
     Route: 042
     Dates: start: 20150313, end: 20150510
  15. VINCRISTINE SULFATE. [Suspect]
     Active Substance: VINCRISTINE SULFATE
     Dosage: 2 MG, SINGLE
     Route: 042
     Dates: start: 20150520, end: 20150520
  16. KEPPRA [Concomitant]
     Active Substance: LEVETIRACETAM
     Dosage: 500 MG, UNK
  17. LEDERFOLINE [Concomitant]
     Active Substance: LEUCOVORIN CALCIUM
     Dosage: 25 MG, UNK
  18. PARACETAMOL [Concomitant]
     Active Substance: ACETAMINOPHEN
  19. MABTHERA [Suspect]
     Active Substance: RITUXIMAB
     Indication: B-CELL LYMPHOMA
     Dosage: 375 MG/M2, CYCLIC
     Route: 042
     Dates: start: 20150313, end: 20150611
  20. CLAFORAN [Concomitant]
     Active Substance: CEFOTAXIME SODIUM
     Indication: FEBRILE BONE MARROW APLASIA
  21. ALLOPURINOL. [Concomitant]
     Active Substance: ALLOPURINOL
     Dosage: 300 MG, UNK

REACTIONS (1)
  - Interstitial lung disease [Recovering/Resolving]

NARRATIVE: CASE EVENT DATE: 20150605
